FAERS Safety Report 24873727 (Version 1)
Quarter: 2025Q1

REPORT INFORMATION
  Report Type: Spontaneous
  Country: US (occurrence: None)
  Receive Date: 20250121
  Receipt Date: 20250121
  Transmission Date: 20250408
  Serious: Yes (Death, Life-Threatening, Hospitalization)
  Sender: FDA-CTU
  Company Number: None

PATIENT
  Age: 82 Year
  Sex: Male
  Weight: 81 kg

DRUGS (4)
  1. RYTELO [Suspect]
     Active Substance: IMETELSTAT SODIUM
     Indication: Myelodysplastic syndrome
     Dosage: OTHER FREQUENCY : MONTHLY;?
     Route: 042
     Dates: start: 20241223, end: 20241223
  2. ATORVASTATIN [Concomitant]
     Active Substance: ATORVASTATIN
  3. CASODEX [Concomitant]
     Active Substance: BICALUTAMIDE
  4. FLOMAX [Concomitant]
     Active Substance: TAMSULOSIN HYDROCHLORIDE

REACTIONS (2)
  - Platelet count decreased [None]
  - Haematological infection [None]

NARRATIVE: CASE EVENT DATE: 20241230
